FAERS Safety Report 10241617 (Version 1)
Quarter: 2014Q2

REPORT INFORMATION
  Report Type: Spontaneous
  Country: US (occurrence: None)
  Receive Date: 20140613
  Receipt Date: 20140613
  Transmission Date: 20141212
  Serious: Yes (Death)
  Sender: FDA-Public Use
  Company Number: US-MDCO-14-00142

PATIENT
  Age: 47 Year
  Sex: Male
  Weight: 100 kg

DRUGS (11)
  1. ANGIOMAX [Suspect]
     Indication: CORONARY ANGIOPLASTY
     Route: 040
     Dates: start: 20140226, end: 20140226
  2. AMIODARONE [Concomitant]
  3. EPINEPHRINE [Concomitant]
  4. ETOMIDATE [Concomitant]
  5. INTEGRILIN (EPTIFIBATIDE) [Concomitant]
  6. LEVOPHED (NOREPINEPHRINE BITARTRATE) [Concomitant]
  7. LIDOCAINE [Concomitant]
  8. OXYGEN [Concomitant]
  9. SUCCINYLCHOLINE CHLORIDE (SUXAMETHONIUM CHLORIDE) [Concomitant]
  10. VERSED (MIDAZOLAM HYDROCHLORIDE) [Concomitant]
  11. ZOFRAN (ONDANSETRON) [Concomitant]

REACTIONS (1)
  - Death [None]
